FAERS Safety Report 6792980-4 (Version None)
Quarter: 2010Q2

REPORT INFORMATION
  Report Type: 
  Country: None (occurrence: None)
  Receive Date: 20100624
  Receipt Date: 20090114
  Transmission Date: 20101027
  Serious: No
  Sender: FDA-Public Use
  Company Number: US-PFIZER INC-2008084036

PATIENT
  Sex: Female
  Weight: 57.272 kg

DRUGS (3)
  1. DEPO-PROVERA SUSPENSION/INJ [Suspect]
     Indication: CONTRACEPTION
  2. METRONIDAZOLE [Concomitant]
  3. HYDROXYZINE [Concomitant]

REACTIONS (2)
  - DIARRHOEA [None]
  - INCORRECT ROUTE OF DRUG ADMINISTRATION [None]
